FAERS Safety Report 14186173 (Version 1)
Quarter: 2017Q4

REPORT INFORMATION
  Report Type: Spontaneous
  Country: US (occurrence: US)
  Receive Date: 20171114
  Receipt Date: 20171114
  Transmission Date: 20180321
  Serious: No
  Sender: FDA-Public Use
  Company Number: US-BAYER-2017-218827

PATIENT
  Age: 10 Year
  Sex: Female

DRUGS (1)
  1. ALEVE [Suspect]
     Active Substance: NAPROXEN SODIUM
     Indication: PAIN
     Dosage: 0.5 DF, PRN
     Route: 048

REACTIONS (3)
  - Off label use [Unknown]
  - Inappropriate prescribing [Unknown]
  - Product use issue [Unknown]
